FAERS Safety Report 14570623 (Version 3)
Quarter: 2018Q1

REPORT INFORMATION
  Report Type: Spontaneous
  Country: DE (occurrence: DE)
  Receive Date: 20180226
  Receipt Date: 20180320
  Transmission Date: 20180509
  Serious: Yes (Other)
  Sender: FDA-Public Use
  Company Number: DE-AMGEN-DEUSP2017181672

PATIENT
  Age: 59 Year
  Sex: Female
  Weight: 79.5 kg

DRUGS (4)
  1. PARSABIV [Suspect]
     Active Substance: ETELCALCETIDE HYDROCHLORIDE
     Dosage: 15 MG, 3 TIMES/WK
     Route: 065
     Dates: start: 20170703, end: 20171127
  2. PARSABIV [Suspect]
     Active Substance: ETELCALCETIDE HYDROCHLORIDE
     Indication: HYPERPARATHYROIDISM SECONDARY
     Dosage: 5 MG, 3 TIMES/WK
     Route: 065
  3. FOSRENOL [Concomitant]
     Active Substance: LANTHANUM CARBONATE
  4. PARSABIV [Suspect]
     Active Substance: ETELCALCETIDE HYDROCHLORIDE
     Dosage: 10 MG, 3 TIMES/WK
     Route: 065

REACTIONS (9)
  - Cyst [Unknown]
  - Pancreatic cyst [Unknown]
  - Adenomatous polyposis coli [Unknown]
  - Bronchitis [Unknown]
  - Congenital cystic kidney disease [Recovered/Resolved]
  - Hepatic cyst [Unknown]
  - Abdominal pain [Recovering/Resolving]
  - Diarrhoea [Recovered/Resolved]
  - Nausea [Recovering/Resolving]

NARRATIVE: CASE EVENT DATE: 20171122
